FAERS Safety Report 14769490 (Version 2)
Quarter: 2018Q2

REPORT INFORMATION
  Report Type: Spontaneous
  Country: BR (occurrence: BR)
  Receive Date: 20180417
  Receipt Date: 20180529
  Transmission Date: 20180711
  Serious: Yes (Hospitalization)
  Sender: FDA-Public Use
  Company Number: BR-ALLERGAN-1820462US

PATIENT
  Age: 92 Year
  Sex: Female

DRUGS (4)
  1. PROLOPA [Suspect]
     Active Substance: BENSERAZIDE\LEVODOPA
     Indication: MUSCLE SPASMS
     Dosage: UNK
     Route: 065
     Dates: end: 201802
  2. MEMANTINE HCL - BP [Suspect]
     Active Substance: MEMANTINE
     Indication: NEURODEGENERATIVE DISORDER
     Dosage: 5 MG QAM AND 10 MG QHS
     Route: 048
     Dates: end: 20180223
  3. PROLOPA [Suspect]
     Active Substance: BENSERAZIDE\LEVODOPA
     Dosage: UNK
     Route: 065
     Dates: start: 20180228
  4. MEMANTINE HCL - BP [Suspect]
     Active Substance: MEMANTINE
     Dosage: 5 MG QAM AND 10 MG QHS
     Route: 050
     Dates: start: 20180224, end: 20180228

REACTIONS (4)
  - Somnolence [Unknown]
  - Off label use [Unknown]
  - Wrong technique in product usage process [Unknown]
  - Muscle spasms [Recovered/Resolved]
